FAERS Safety Report 8518533-5 (Version None)
Quarter: 2012Q3

REPORT INFORMATION
  Report Type: 
  Country: None (occurrence: None)
  Receive Date: 20120718
  Receipt Date: 20120501
  Transmission Date: 20120928
  Serious: No
  Sender: FDA-Public Use
  Company Number: US-BRISTOL-MYERS SQUIBB COMPANY-16565525

PATIENT
  Age: 63 Year
  Sex: Female

DRUGS (4)
  1. LETAIRIS [Suspect]
     Indication: PULMONARY HYPERTENSION
     Route: 048
     Dates: start: 20100810
  2. COUMADIN [Suspect]
     Route: 065
  3. TREPROSTINIL [Suspect]
     Route: 065
  4. TRACLEER [Concomitant]

REACTIONS (2)
  - HAEMOPTYSIS [None]
  - THROAT IRRITATION [None]
